FAERS Safety Report 5385907-3 (Version None)
Quarter: 2007Q3

REPORT INFORMATION
  Report Type: 
  Country: None (occurrence: None)
  Receive Date: 20070712
  Receipt Date: 20070701
  Transmission Date: 20080115
  Serious: Yes (Hospitalization)
  Sender: FDA-Public Use
  Company Number: US-SHR-US-2007-021738

PATIENT
  Age: 52 Year
  Sex: Female

DRUGS (3)
  1. BETASERON [Suspect]
     Dosage: 4 MIU, EVERY 2D
     Route: 058
     Dates: start: 20070511, end: 20070101
  2. BETASERON [Suspect]
     Dosage: 6 MIU, EVERY 2D
     Route: 058
     Dates: start: 20070101
  3. COUMADIN [Concomitant]

REACTIONS (10)
  - ANKLE FRACTURE [None]
  - BALANCE DISORDER [None]
  - DEPRESSION [None]
  - FALL [None]
  - FIBULA FRACTURE [None]
  - GAIT DISTURBANCE [None]
  - MALAISE [None]
  - PAIN [None]
  - TENDON INJURY [None]
  - TIBIA FRACTURE [None]
